FAERS Safety Report 14616306 (Version 4)
Quarter: 2019Q2

REPORT INFORMATION
  Report Type: Spontaneous
  Country: US (occurrence: US)
  Receive Date: 20180309
  Receipt Date: 20190509
  Transmission Date: 20190711
  Serious: No
  Sender: FDA-Public Use
  Company Number: US-PFIZER INC-2018096221

PATIENT
  Age: 44 Year
  Sex: Female
  Weight: 123.81 kg

DRUGS (10)
  1. LYRICA [Interacting]
     Active Substance: PREGABALIN
     Indication: FIBROMYALGIA
     Dosage: 375 MG, DAILY (150MG DURING THE DAY AND 225MG AT NIGHT)
  2. ADDERALL [Concomitant]
     Active Substance: AMPHETAMINE ASPARTATE\AMPHETAMINE SULFATE\DEXTROAMPHETAMINE SACCHARATE\DEXTROAMPHETAMINE SULFATE
     Indication: THINKING ABNORMAL
     Dosage: 20 MG, 2X/DAY
  3. MORPHINE SULFATE ER [Interacting]
     Active Substance: MORPHINE SULFATE
     Indication: INTERVERTEBRAL DISC PROTRUSION
     Dosage: 15 MG, 2X/DAY(1 TABLET EVERY 12 HOURS)
     Dates: start: 2006
  4. LYRICA [Interacting]
     Active Substance: PREGABALIN
     Indication: PLANTAR FASCIITIS
     Dosage: 350 MG, DAILY (125 MG DURING DAY, 225 MG DURING NIGHT)
     Dates: start: 2018
  5. HYDROCODONE/ACETAMINOPHEN [Interacting]
     Active Substance: ACETAMINOPHEN\HYDROCODONE
     Indication: INTERVERTEBRAL DISC PROTRUSION
     Dosage: 1 DF, 4X/DAY
     Route: 048
     Dates: start: 2006
  6. ADDERALL [Concomitant]
     Active Substance: AMPHETAMINE ASPARTATE\AMPHETAMINE SULFATE\DEXTROAMPHETAMINE SACCHARATE\DEXTROAMPHETAMINE SULFATE
     Indication: SLEEP DISORDER
     Dosage: 40 MG, DAILY
  7. LYRICA [Interacting]
     Active Substance: PREGABALIN
     Indication: PSORIATIC ARTHROPATHY
     Dosage: 325 MG, DAILY (100MG IN THE DAY AND 225MG AT NIGHT)
  8. LYRICA [Suspect]
     Active Substance: PREGABALIN
     Indication: NEUROPATHY PERIPHERAL
     Dosage: 450 MG, 1X/DAY, (2 CAPSULES AT BEDTIME)
     Dates: start: 2017, end: 2018
  9. LEVOTHYROXINE. [Concomitant]
     Active Substance: LEVOTHYROXINE
     Indication: AUTOIMMUNE THYROIDITIS
     Dosage: 125 UG, 2X/DAY
  10. LEVOTHYROXINE. [Concomitant]
     Active Substance: LEVOTHYROXINE
     Dosage: 250 UG, DAILY

REACTIONS (8)
  - Weight increased [Unknown]
  - Fatigue [Unknown]
  - Feeling abnormal [Unknown]
  - Somnolence [Recovered/Resolved]
  - Pain in extremity [Recovering/Resolving]
  - Intentional product use issue [Unknown]
  - Therapeutic product effect incomplete [Recovering/Resolving]
  - Drug interaction [Unknown]

NARRATIVE: CASE EVENT DATE: 201902
